FAERS Safety Report 9293884 (Version 1)
Quarter: 2013Q1

REPORT INFORMATION
  Report Type: Spontaneous
  Country: US (occurrence: None)
  Receive Date: 20121217
  Receipt Date: 20121217
  Transmission Date: 20140127
  Serious: Yes (Hospitalization)
  Sender: FDA-Public Use
  Company Number: 1000029245

PATIENT
  Age: 88 Year
  Sex: Male

DRUGS (5)
  1. NAMENDA [Suspect]
     Indication: DEMENTIA ALZHEIMER^S TYPE
     Dosage: 5 MG 1 IN 1 D
  2. NAMENDA [Suspect]
     Indication: DEMENTIA ALZHEIMER^S TYPE
     Dosage: 10 MG, 2 IN 1 D
     Dates: start: 201203, end: 201203
  3. AZOR [Concomitant]
  4. RAZADYNE [Concomitant]
  5. SEROQUEL [Concomitant]

REACTIONS (1)
  - Heart rate decreased [None]
